FAERS Safety Report 7518148-1 (Version None)
Quarter: 2011Q2

REPORT INFORMATION
  Report Type: 
  Country: None (occurrence: None)
  Receive Date: 20110531
  Receipt Date: 20110531
  Transmission Date: 20111010
  Serious: Yes (Hospitalization)
  Sender: FDA-Public Use
  Company Number: None

PATIENT
  Sex: Male
  Weight: 101.1 kg

DRUGS (6)
  1. ETOPOSIDE [Suspect]
     Dosage: 448 MG
  2. PREDNISONE [Suspect]
     Dosage: 1350 MG
  3. VINCRISTINE SULFATE [Suspect]
     Dosage: 3.6 MG
  4. CYCLOPHOSPHAMIDE [Suspect]
     Dosage: 1690 MG
  5. RITUXIMAB (MOAB C2B8 ANTI CD20, CHIMERIC) [Suspect]
  6. DOXORUBICIN HYDROCHLORIDE [Suspect]
     Dosage: 90 MG

REACTIONS (1)
  - DEATH [None]
